FAERS Safety Report 6523283-0 (Version None)
Quarter: 2009Q4

REPORT INFORMATION
  Report Type: 
  Country: None (occurrence: None)
  Receive Date: 20091231
  Receipt Date: 20091221
  Transmission Date: 20100525
  Serious: Yes (Hospitalization)
  Sender: FDA-Public Use
  Company Number: US-JNJFOC-20090700299

PATIENT
  Sex: Female
  Weight: 71.22 kg

DRUGS (15)
  1. REMICADE [Suspect]
     Indication: CROHN'S DISEASE
     Route: 042
  2. ASACOL [Concomitant]
     Indication: CROHN'S DISEASE
  3. LISINOPRIL [Concomitant]
     Indication: HYPERTENSION
  4. HYDROCHLOROTHIAZIDE [Concomitant]
     Indication: HYPERTENSION
  5. ZYRTEC [Concomitant]
     Indication: MULTIPLE ALLERGIES
  6. STOOL SOFTENER [Concomitant]
  7. HEPARIN LOCK-FLUSH [Concomitant]
  8. LABETALOL HCL [Concomitant]
  9. CALCIUM [Concomitant]
  10. VITAMIN AND MINERAL PRENATAL SUPPLEMENT W/ FOLIC ACID CAP [Concomitant]
  11. MULTI-VITAMINS [Concomitant]
  12. DOCUSATE [Concomitant]
     Indication: ABNORMAL FAECES
  13. HYDROCORTISONE [Concomitant]
     Indication: PROPHYLAXIS
  14. ACETAMINOPHEN [Concomitant]
     Indication: PROPHYLAXIS
  15. LORATADINE [Concomitant]
     Indication: PROPHYLAXIS

REACTIONS (2)
  - CAESAREAN SECTION [None]
  - DRUG EXPOSURE DURING PREGNANCY [None]
